FAERS Safety Report 6522024-0 (Version None)
Quarter: 2009Q4

REPORT INFORMATION
  Report Type: 
  Country: None (occurrence: None)
  Receive Date: 20091230
  Receipt Date: 20091224
  Transmission Date: 20100525
  Serious: Yes (Hospitalization)
  Sender: FDA-Public Use
  Company Number: BE-ROCHE-675591

PATIENT
  Sex: Male
  Weight: 105 kg

DRUGS (6)
  1. BEVACIZUMAB [Suspect]
     Indication: DRUG USE FOR UNKNOWN INDICATION
     Dosage: DOSE DELAYED. LAST DOSE PRIOR TO SAE: 25 NOVEMBER 2009.  FREQUENCY: 1Q/ 21 DAYS.
     Route: 042
     Dates: start: 20091125
  2. CAPECITABINE [Suspect]
     Indication: DRUG USE FOR UNKNOWN INDICATION
     Route: 065
     Dates: start: 20091125
  3. SEROXAT [Concomitant]
     Dates: start: 19990101
  4. TRAZOLAN [Concomitant]
     Dates: start: 19990101
  5. DIOVAN [Concomitant]
  6. OXALIPLATINUM [Concomitant]
     Dates: start: 20091125

REACTIONS (2)
  - ABDOMINAL PAIN [None]
  - ENTERITIS [None]
